FAERS Safety Report 17052580 (Version 5)
Quarter: 2021Q3

REPORT INFORMATION
  Report Type: Report from Study
  Country: US (occurrence: US)
  Receive Date: 20191120
  Receipt Date: 20210927
  Transmission Date: 20211014
  Serious: Yes (Hospitalization, Other)
  Sender: FDA-Public Use
  Company Number: US-TAKEDA-2018TUS036791

PATIENT
  Sex: Female

DRUGS (9)
  1. PONATINIB [Suspect]
     Active Substance: PONATINIB
     Indication: ACUTE LYMPHOCYTIC LEUKAEMIA
     Dosage: 15 MILLIGRAM, QD
     Route: 048
     Dates: start: 201402
  2. AMLODIPINE BESYLATE. [Concomitant]
     Active Substance: AMLODIPINE BESYLATE
     Dosage: UNK
     Route: 065
  3. TAMSULOSIN HCL [Concomitant]
     Active Substance: TAMSULOSIN HYDROCHLORIDE
     Dosage: UNK
     Route: 065
  4. HYDRALAZINE HCL [Concomitant]
     Active Substance: HYDRALAZINE HYDROCHLORIDE
     Dosage: UNK
     Route: 065
  5. PREMARIN [Concomitant]
     Active Substance: ESTROGENS, CONJUGATED
     Dosage: UNK
     Route: 065
  6. CO Q 10                            /00517201/ [Concomitant]
     Dosage: UNK
     Route: 065
  7. PONATINIB [Suspect]
     Active Substance: PONATINIB
     Indication: CHRONIC MYELOID LEUKAEMIA
  8. CARVEDILOL. [Concomitant]
     Active Substance: CARVEDILOL
     Dosage: UNK
     Route: 065
  9. AVAPRO [Concomitant]
     Active Substance: IRBESARTAN
     Dosage: UNK
     Route: 065

REACTIONS (16)
  - Obstructive pancreatitis [Recovered/Resolved]
  - Fluid retention [Unknown]
  - Haemorrhage [Recovered/Resolved]
  - Leukaemia [Unknown]
  - Product dose omission issue [Unknown]
  - Fall [Unknown]
  - Pneumonia [Unknown]
  - Leg amputation [Unknown]
  - GM2 gangliosidosis [Unknown]
  - Arthralgia [Unknown]
  - Peripheral swelling [Unknown]
  - Hip fracture [Unknown]
  - Cerebrovascular accident [Unknown]
  - Pleural effusion [Unknown]
  - Musculoskeletal discomfort [Unknown]
  - Back disorder [Unknown]
